FAERS Safety Report 7070495-6 (Version None)
Quarter: 2010Q4

REPORT INFORMATION
  Report Type: 
  Country: None (occurrence: None)
  Receive Date: 20101029
  Receipt Date: 20101020
  Transmission Date: 20110411
  Serious: Yes (Other)
  Sender: FDA-Public Use
  Company Number: US-JNJFOC-20101006726

PATIENT
  Sex: Female
  Weight: 54.43 kg

DRUGS (11)
  1. FENTANYL [Suspect]
     Indication: BACK PAIN
     Route: 062
  2. FENTANYL [Suspect]
     Indication: BACK PAIN
     Dosage: NDC# 0781-7242-55
     Route: 062
  3. LYRICA [Suspect]
     Indication: FIBROMYALGIA
     Route: 048
  4. LYRICA [Suspect]
     Route: 048
  5. LYRICA [Suspect]
     Indication: PAIN
     Route: 048
  6. LYRICA [Suspect]
     Route: 048
  7. FERROUS SULFATE [Concomitant]
     Indication: NUTRITIONAL SUPPORT
     Route: 048
  8. ASPIRIN [Concomitant]
     Indication: THROMBOSIS
     Route: 048
  9. POTASSIUM CHLORIDE [Concomitant]
     Indication: NUTRITIONAL SUPPORT
     Route: 048
  10. LASIX [Concomitant]
     Indication: OEDEMA PERIPHERAL
     Route: 048
  11. ULTRAM [Concomitant]
     Indication: PAIN
     Dosage: 50 MG, 2 TABLETS, THREE TIMES DAILY
     Route: 048

REACTIONS (10)
  - APPLICATION SITE BURN [None]
  - APPLICATION SITE PAIN [None]
  - HYPERHIDROSIS [None]
  - INAPPROPRIATE SCHEDULE OF DRUG ADMINISTRATION [None]
  - INCORRECT ROUTE OF DRUG ADMINISTRATION [None]
  - PAIN [None]
  - PRE-EXISTING DISEASE [None]
  - PRODUCT ADHESION ISSUE [None]
  - TREATMENT NONCOMPLIANCE [None]
  - WEIGHT INCREASED [None]
